FAERS Safety Report 8387621-9 (Version None)
Quarter: 2012Q2

REPORT INFORMATION
  Report Type: 
  Country: None (occurrence: None)
  Receive Date: 20120525
  Receipt Date: 20120522
  Transmission Date: 20120825
  Serious: No
  Sender: FDA-Public Use
  Company Number: US-PFIZER INC-2012124096

PATIENT
  Sex: Female
  Weight: 81.179 kg

DRUGS (10)
  1. PRISTIQ [Suspect]
     Indication: CRYING
  2. FOLIC ACID [Concomitant]
     Dosage: 1 MG, UNK
  3. TERBINAFINE [Concomitant]
     Indication: FUNGAL INFECTION
     Dosage: 250 MG, UNK
  4. PRISTIQ [Suspect]
     Indication: DEPRESSION
  5. PANTOPRAZOLE [Concomitant]
     Dosage: 40 MG, UNK
  6. LOVENOX [Concomitant]
     Dosage: 137 MG, UNK
  7. ENBREL [Concomitant]
     Indication: RHEUMATOID ARTHRITIS
     Dosage: UNK
  8. PRISTIQ [Suspect]
     Indication: THYROID DISORDER
     Dosage: 50 MG, DAILY
     Dates: start: 20120301
  9. DIOVAN HCT [Concomitant]
     Indication: HYPERTENSION
     Dosage: 80/12.5MG, UNK
  10. SYNTHROID [Concomitant]
     Dosage: 1.5 MG, WEEKLY

REACTIONS (6)
  - THYROID DISORDER [None]
  - FATIGUE [None]
  - NAUSEA [None]
  - DRUG DOSE OMISSION [None]
  - MALAISE [None]
  - WEIGHT INCREASED [None]
